FAERS Safety Report 5144079-0 (Version None)
Quarter: 2006Q4

REPORT INFORMATION
  Report Type: 
  Country: None (occurrence: None)
  Receive Date: 20061106
  Receipt Date: 20061026
  Transmission Date: 20070319
  Serious: Yes (Hospitalization)
  Sender: FDA-Public Use
  Company Number: FR-GLAXOSMITHKLINE-B0444110A

PATIENT
  Age: 49 Year
  Sex: Male
  Weight: 75 kg

DRUGS (12)
  1. TELZIR [Suspect]
     Dosage: 1TAB TWICE PER DAY
     Route: 048
  2. KALETRA [Suspect]
     Dosage: 3TAB TWICE PER DAY
     Route: 048
     Dates: start: 20040909, end: 20050111
  3. TAXOTERE [Suspect]
     Indication: CHEMOTHERAPY
     Dosage: 115MG SINGLE DOSE
     Route: 042
     Dates: start: 20050111, end: 20050111
  4. CEFUROXIME [Concomitant]
     Dosage: 500MG THREE TIMES PER DAY
     Route: 048
  5. FUZEON [Concomitant]
     Dosage: 1INJ TWICE PER DAY
     Route: 058
  6. EMTRIVA [Concomitant]
     Dosage: 1CAP THREE TIMES PER DAY
     Route: 048
  7. ATARAX [Concomitant]
     Dosage: 50MG AT NIGHT
     Route: 048
  8. ASPEGIC 1000 [Concomitant]
     Dosage: 250MG PER DAY
     Route: 048
  9. OMEPRAZOLE [Concomitant]
     Dosage: 20MG AT NIGHT
     Route: 048
  10. BACTRIM DS [Concomitant]
     Dosage: 1TAB PER DAY
     Route: 048
  11. FORLAX [Concomitant]
     Dosage: 1SAC PER DAY
     Route: 048
  12. ACETAMINOPHEN W/ PROPOXYPHENE HCL [Concomitant]
     Route: 048

REACTIONS (13)
  - ALOPECIA [None]
  - BLOOD ALKALINE PHOSPHATASE INCREASED [None]
  - CHILLS [None]
  - DIARRHOEA [None]
  - DRUG INTERACTION [None]
  - GAMMA-GLUTAMYLTRANSFERASE INCREASED [None]
  - GINGIVITIS [None]
  - MUCOSAL INFLAMMATION [None]
  - NEUTROPENIA [None]
  - ONYCHOLYSIS [None]
  - PYREXIA [None]
  - STOMATITIS [None]
  - TRANSAMINASES INCREASED [None]
